FAERS Safety Report 17567713 (Version 1)
Quarter: 2020Q1

REPORT INFORMATION
  Report Type: Report from Study
  Country: CA (occurrence: CA)
  Receive Date: 20200320
  Receipt Date: 20200320
  Transmission Date: 20200409
  Serious: Yes (Other)
  Sender: FDA-Public Use
  Company Number: CA-JNJFOC-20200316730

PATIENT
  Sex: Female
  Weight: 65 kg

DRUGS (1)
  1. REMICADE [Suspect]
     Active Substance: INFLIXIMAB
     Indication: ERYTHEMA NODOSUM
     Route: 042
     Dates: start: 20181108

REACTIONS (1)
  - Basal cell carcinoma [Recovered/Resolved]
